FAERS Safety Report 12757490 (Version 1)
Quarter: 2016Q3

REPORT INFORMATION
  Report Type: Spontaneous
  Country: ES (occurrence: ES)
  Receive Date: 20160919
  Receipt Date: 20160919
  Transmission Date: 20161109
  Serious: Yes (Hospitalization, Other)
  Sender: FDA-Public Use
  Company Number: ES-ZYDUS-012080

PATIENT
  Age: 37 Year
  Sex: Female

DRUGS (14)
  1. QUETIAPINE/QUETIAPINE FUMARATE [Suspect]
     Active Substance: QUETIAPINE FUMARATE
     Indication: INSOMNIA
     Route: 065
  2. LAMOTRIGINE. [Suspect]
     Active Substance: LAMOTRIGINE
     Indication: PRODUCT USED FOR UNKNOWN INDICATION
     Route: 065
  3. VALPROIC ACID. [Concomitant]
     Active Substance: VALPROIC ACID
     Indication: PRODUCT USED FOR UNKNOWN INDICATION
     Route: 065
     Dates: start: 201312
  4. ASENAPINE [Concomitant]
     Active Substance: ASENAPINE
     Indication: ILLUSION
     Route: 065
     Dates: end: 201212
  5. LAMOTRIGINE. [Suspect]
     Active Substance: LAMOTRIGINE
     Indication: PRODUCT USED FOR UNKNOWN INDICATION
     Route: 065
     Dates: end: 201405
  6. QUETIAPINE/QUETIAPINE FUMARATE [Suspect]
     Active Substance: QUETIAPINE FUMARATE
     Indication: NERVOUSNESS
     Dosage: UP TO 200 MG/DAY
     Route: 065
     Dates: start: 201306, end: 201312
  7. ASENAPINE [Concomitant]
     Active Substance: ASENAPINE
     Indication: IRRITABILITY
     Route: 065
     Dates: end: 201212
  8. ASENAPINE [Concomitant]
     Active Substance: ASENAPINE
     Indication: ILLUSION
     Route: 065
  9. LAMOTRIGINE. [Suspect]
     Active Substance: LAMOTRIGINE
     Indication: PRODUCT USED FOR UNKNOWN INDICATION
     Route: 065
  10. LAMOTRIGINE. [Suspect]
     Active Substance: LAMOTRIGINE
     Indication: PRODUCT USED FOR UNKNOWN INDICATION
     Route: 065
  11. QUETIAPINE/QUETIAPINE FUMARATE [Suspect]
     Active Substance: QUETIAPINE FUMARATE
     Indication: INSOMNIA
     Route: 065
     Dates: start: 201212
  12. VALPROIC ACID. [Concomitant]
     Active Substance: VALPROIC ACID
     Indication: PRODUCT USED FOR UNKNOWN INDICATION
     Route: 065
  13. LORMETAZEPAM [Concomitant]
     Active Substance: LORMETAZEPAM
     Indication: PRODUCT USED FOR UNKNOWN INDICATION
     Route: 065
  14. ASENAPINE [Concomitant]
     Active Substance: ASENAPINE
     Indication: IRRITABILITY
     Route: 065

REACTIONS (11)
  - Acne [Unknown]
  - Fall [Recovered/Resolved]
  - Nervousness [Unknown]
  - Drug dose omission [Recovered/Resolved]
  - Muscular weakness [Recovered/Resolved]
  - Insomnia [Unknown]
  - Fear [Unknown]
  - Cataplexy [Recovered/Resolved]
  - Depressed mood [Unknown]
  - Irritability [Unknown]
  - Illusion [Unknown]
